FAERS Safety Report 8792310 (Version 4)
Quarter: 2012Q4

REPORT INFORMATION
  Report Type: 
  Country: US (occurrence: US)
  Receive Date: 20120918
  Receipt Date: 20121121
  Transmission Date: 20130627
  Serious: Yes (Death, Other)
  Sender: FDA-Public Use
  Company Number: US-PFIZER INC-2012226502

PATIENT
  Age: 85 Year
  Sex: Male

DRUGS (1)
  1. SUTENT [Suspect]
     Indication: METASTATIC RENAL CELL CARCINOMA
     Dosage: 50 mg daily for 28 days followed by 2 weeks off
     Dates: start: 20120315

REACTIONS (5)
  - Death [Fatal]
  - Convulsion [Recovered/Resolved]
  - Asthenia [Unknown]
  - Influenza [Unknown]
  - Increased tendency to bruise [Unknown]
